FAERS Safety Report 7885166-3 (Version None)
Quarter: 2011Q4

REPORT INFORMATION
  Report Type: 
  Country: None (occurrence: None)
  Receive Date: 20111102
  Receipt Date: 20111025
  Transmission Date: 20120403
  Serious: Yes (Hospitalization)
  Sender: FDA-Public Use
  Company Number: KR-ELI_LILLY_AND_COMPANY-KR201110007747

PATIENT
  Age: 54 Year
  Sex: Male

DRUGS (3)
  1. HUMALOG [Suspect]
     Dosage: 20 U, EACH EVENING
     Route: 058
     Dates: start: 20110501
  2. HUMALOG [Suspect]
     Indication: TYPE 2 DIABETES MELLITUS
     Dosage: 30 U, EACH MORNING
     Route: 058
     Dates: start: 20110501
  3. ANTIHYPERTENSIVES [Concomitant]
     Dosage: UNK

REACTIONS (1)
  - HEPATIC CIRRHOSIS [None]
